FAERS Safety Report 8716214 (Version 3)
Quarter: 2013Q4

REPORT INFORMATION
  Report Type: Spontaneous
  Country: JP (occurrence: JP)
  Receive Date: 20120809
  Receipt Date: 20131001
  Transmission Date: 20140711
  Serious: Yes (Life-Threatening, Other)
  Sender: FDA-Public Use
  Company Number: JP-009507513-2011SP045894

PATIENT
  Age: 65 Year
  Sex: Female
  Weight: 54 kg

DRUGS (11)
  1. BRIDION [Suspect]
     Indication: NEUROMUSCULAR BLOCKADE REVERSAL
     Dosage: 100 MG/ML, ONCE
     Route: 042
     Dates: start: 20110927, end: 20110927
  2. ESLAX [Concomitant]
     Indication: NEUROMUSCULAR BLOCKING THERAPY
     Dosage: 40 MG, ONCE
     Route: 042
     Dates: start: 20110927, end: 20110927
  3. RENIVACE [Concomitant]
     Dosage: UNK
     Route: 048
  4. ACTOS [Concomitant]
     Dosage: UNK
     Route: 048
  5. SERMION [Concomitant]
     Dosage: UNK
     Route: 048
  6. CRIXOFOL [Concomitant]
     Indication: INDUCTION OF ANAESTHESIA
     Dosage: 50 MG, UNK
  7. SEVOFLURANE [Concomitant]
     Indication: MAINTENANCE OF ANAESTHESIA
     Dosage: 1 %, UNK
  8. ROPIVACAINE [Concomitant]
     Indication: ANAESTHESIA PROCEDURE
     Dosage: 2 MCG/ML
     Route: 008
  9. FENTANYL [Concomitant]
     Indication: ANAESTHESIA PROCEDURE
     Dosage: 4 ML/H, ONCE
     Route: 008
     Dates: start: 20110927, end: 20110927
  10. LIDOCAINE [Concomitant]
     Indication: ANAESTHESIA PROCEDURE
     Dosage: 4 ML, UNK
  11. CEFAZOLIN [Concomitant]
     Dosage: INDRP

REACTIONS (7)
  - Anaphylactic shock [Recovered/Resolved]
  - Erythema [Recovered/Resolved]
  - Blood pressure decreased [Recovered/Resolved]
  - Urticaria [Recovered/Resolved]
  - Heart rate increased [Recovered/Resolved]
  - Feeling abnormal [Recovered/Resolved]
  - Dyspnoea [Recovered/Resolved]
